FAERS Safety Report 24670500 (Version 1)
Quarter: 2024Q4

REPORT INFORMATION
  Report Type: Spontaneous
  Country: FR (occurrence: FR)
  Receive Date: 20241127
  Receipt Date: 20241127
  Transmission Date: 20250114
  Serious: Yes (Other)
  Sender: PFIZER
  Company Number: FR-PFIZER INC-PV202400152107

PATIENT
  Age: 77 Year
  Sex: Male
  Weight: 78 kg

DRUGS (4)
  1. MEROPENEM [Suspect]
     Active Substance: MEROPENEM
     Indication: Enterobacter infection
     Dosage: 2 G, 3X/DAY, (EXTENDED-INFUSION OVER 3 H)
     Route: 042
     Dates: start: 2022, end: 2022
  2. MEROPENEM [Suspect]
     Active Substance: MEROPENEM
     Indication: Osteomyelitis
  3. AMIKACIN [Concomitant]
     Active Substance: AMIKACIN
     Indication: Enterobacter infection
     Dosage: 30 MG/KG, SINGLE DOSE
     Dates: start: 2022, end: 2022
  4. AMIKACIN [Concomitant]
     Active Substance: AMIKACIN
     Indication: Osteomyelitis

REACTIONS (3)
  - Neurotoxicity [Unknown]
  - Renal function test abnormal [Recovering/Resolving]
  - Off label use [Unknown]
